FAERS Safety Report 12767343 (Version 1)
Quarter: 2016Q3

REPORT INFORMATION
  Report Type: Spontaneous
  Country: US (occurrence: US)
  Receive Date: 20160915
  Receipt Date: 20160915
  Transmission Date: 20161109
  Serious: No
  Sender: FDA-Public Use
  Company Number: None

PATIENT
  Age: 61 Year
  Sex: Female

DRUGS (1)
  1. COSENTYX [Suspect]
     Active Substance: SECUKINUMAB
     Indication: PSORIASIS
     Dosage: COSENTYX 300MG - SUBCUTANEOUSLY - Q4WEEK
     Route: 058
     Dates: start: 20160414, end: 20160707

REACTIONS (3)
  - Swelling [None]
  - Rash macular [None]
  - Drug hypersensitivity [None]

NARRATIVE: CASE EVENT DATE: 20160707
